FAERS Safety Report 7557087-7 (Version None)
Quarter: 2011Q2

REPORT INFORMATION
  Report Type: 
  Country: None (occurrence: None)
  Receive Date: 20110620
  Receipt Date: 20110615
  Transmission Date: 20111010
  Serious: Yes (Other)
  Sender: FDA-Public Use
  Company Number: IT-PFIZER INC-2011131892

PATIENT
  Age: 33 Year
  Sex: Male

DRUGS (1)
  1. ZITHROMAX [Suspect]
     Indication: PHARYNGITIS
     Dosage: 1 DF, TOTAL DOSE
     Route: 048
     Dates: start: 20110429, end: 20110429

REACTIONS (3)
  - OROPHARYNGEAL SWELLING [None]
  - DYSPHAGIA [None]
  - PHARYNGEAL ERYTHEMA [None]
